FAERS Safety Report 6908876-0 (Version None)
Quarter: 2010Q3

REPORT INFORMATION
  Report Type: 
  Country: None (occurrence: None)
  Receive Date: 20100805
  Receipt Date: 20100730
  Transmission Date: 20110219
  Serious: Yes (Hospitalization)
  Sender: FDA-Public Use
  Company Number: NL-AMGEN-QUU422589

PATIENT
  Sex: Female

DRUGS (16)
  1. NEULASTA [Suspect]
     Indication: CHEMOTHERAPY
     Route: 065
     Dates: start: 20100619
  2. SERTRALINE HYDROCHLORIDE [Concomitant]
  3. COTRIM [Concomitant]
  4. FOLIC ACID [Concomitant]
  5. POTASSIUM [Concomitant]
  6. NEXIUM [Concomitant]
  7. LEVOTHYROXINE SODIUM [Concomitant]
  8. ALLOPURINOL [Concomitant]
  9. PARACETAMOL [Concomitant]
  10. TEMAZEPAM [Concomitant]
  11. VALACYCLOVIR [Concomitant]
  12. METOCLOPRAMIDE [Concomitant]
  13. GRANISETRON HCL [Concomitant]
  14. PREDNISOLONE [Concomitant]
  15. TAVEGIL [Concomitant]
  16. UNSPECIFIED ANTINEOPLASTIC AGENT [Concomitant]

REACTIONS (3)
  - BONE PAIN [None]
  - HEADACHE [None]
  - TENSION [None]
